FAERS Safety Report 17603155 (Version 1)
Quarter: 2020Q1

REPORT INFORMATION
  Report Type: Spontaneous
  Country: GB (occurrence: GB)
  Receive Date: 20200331
  Receipt Date: 20200331
  Transmission Date: 20200409
  Serious: Yes (Life-Threatening)
  Sender: FDA-Public Use
  Company Number: GB-TEVA-2018-GB-854729

PATIENT
  Age: 49 Year
  Sex: Female

DRUGS (1)
  1. NORETHISTERONE ACETATE [Suspect]
     Active Substance: NORETHINDRONE ACETATE
     Indication: MENORRHAGIA
     Dosage: 10 MILLIGRAM DAILY;
     Route: 048
     Dates: start: 20171012, end: 20171206

REACTIONS (2)
  - Pulmonary embolism [Recovering/Resolving]
  - Dyspnoea [Unknown]

NARRATIVE: CASE EVENT DATE: 201711
